FAERS Safety Report 7054569-1 (Version None)
Quarter: 2010Q4

REPORT INFORMATION
  Report Type: 
  Country: None (occurrence: None)
  Receive Date: 20101020
  Receipt Date: 20101007
  Transmission Date: 20110411
  Serious: Yes (Congenital Anomaly, Other)
  Sender: FDA-Public Use
  Company Number: US-ELI_LILLY_AND_COMPANY-US97051741A

PATIENT
  Sex: Female
  Weight: 3 kg

DRUGS (4)
  1. PROZAC [Suspect]
     Indication: DEPRESSION
     Dosage: 60 MG, UNKNOWN
  2. PROZAC [Suspect]
     Dosage: 20 MG, 2/D
  3. VITAMINS [Concomitant]
     Dosage: UNK, UNKNOWN
  4. FOLIC ACID [Concomitant]

REACTIONS (4)
  - CYANOSIS NEONATAL [None]
  - FOETAL DISORDER [None]
  - HAEMANGIOMA OF SKIN [None]
  - VOMITING PROJECTILE [None]
